FAERS Safety Report 5053477-5 (Version None)
Quarter: 2006Q3

REPORT INFORMATION
  Report Type: 
  Country: None (occurrence: None)
  Receive Date: 20060718
  Receipt Date: 20060707
  Transmission Date: 20061208
  Serious: Yes (Hospitalization)
  Sender: FDA-Public Use
  Company Number: JP-JNJFOC-20060701622

PATIENT
  Age: 13 Year
  Sex: Male

DRUGS (1)
  1. LOPEMIN [Suspect]
     Indication: DIARRHOEA
     Dosage: IN THREE DIVIDED DOSES
     Route: 048

REACTIONS (1)
  - RENAL IMPAIRMENT [None]
